FAERS Safety Report 11026024 (Version 1)
Quarter: 2015Q2

REPORT INFORMATION
  Report Type: Report from Study
  Country: BE (occurrence: BE)
  Receive Date: 20150414
  Receipt Date: 20150414
  Transmission Date: 20150821
  Serious: Yes (Other)
  Sender: FDA-Public Use
  Company Number: BE-PFIZER INC-2015116873

PATIENT

DRUGS (3)
  1. SUNITINIB MALATE [Suspect]
     Active Substance: SUNITINIB MALATE
     Indication: METASTATIC RENAL CELL CARCINOMA
     Dosage: 50 MG, CYCLIC (SINGLE DOSE IN 4 WEEKS ON/2 WEEKS OFF)
     Route: 048
  2. INDAPAMIDE. [Interacting]
     Active Substance: INDAPAMIDE
     Dosage: UNK
  3. SOTALOL. [Interacting]
     Active Substance: SOTALOL
     Dosage: UNK

REACTIONS (2)
  - Drug interaction [Unknown]
  - Electrocardiogram QT prolonged [Unknown]
